FAERS Safety Report 13981384 (Version 7)
Quarter: 2019Q4

REPORT INFORMATION
  Report Type: Spontaneous
  Country: US (occurrence: US)
  Receive Date: 20170918
  Receipt Date: 20191118
  Transmission Date: 20200122
  Serious: No
  Sender: FDA-Public Use
  Company Number: US-PFIZER INC-2017399700

PATIENT
  Age: 58 Year
  Sex: Female

DRUGS (2)
  1. IBRANCE [Suspect]
     Active Substance: PALBOCICLIB
     Indication: BREAST CANCER FEMALE
     Dosage: 125 MG, UNK
     Route: 048
  2. IBRANCE [Suspect]
     Active Substance: PALBOCICLIB
     Dosage: 100 MG, CYCLIC (100 MG DAILY X 21 DAYS THAN 7 DAYS OFF)
     Route: 048
     Dates: start: 2017

REACTIONS (7)
  - Emotional disorder [Unknown]
  - Dysstasia [Unknown]
  - Depressed mood [Unknown]
  - Memory impairment [Unknown]
  - Blood pressure decreased [Not Recovered/Not Resolved]
  - Peripheral swelling [Recovered/Resolved]
  - Psychiatric symptom [Unknown]
